FAERS Safety Report 15168685 (Version 1)
Quarter: 2018Q3

REPORT INFORMATION
  Report Type: Spontaneous
  Country: DE (occurrence: DE)
  Receive Date: 20180720
  Receipt Date: 20180720
  Transmission Date: 20181010
  Serious: Yes (Hospitalization, Other)
  Sender: FDA-Public Use
  Company Number: DE-AUROBINDO-AUR-APL-2018-036336

PATIENT
  Age: 83 Year
  Sex: Male

DRUGS (16)
  1. MELPERON [Interacting]
     Active Substance: MELPERONE
     Dosage: 50 MILLIGRAM, DAILY,DOSAGE FORM: UNSPECIFIED
     Route: 048
     Dates: start: 20180304, end: 20180305
  2. MELPERON [Interacting]
     Active Substance: MELPERONE
     Dosage: 25 MILLIGRAM, DAILY,DOSAGE FORM: UNSPECIFIED
     Route: 048
     Dates: start: 20180303, end: 20180303
  3. PANTOPRAZOL                        /01263201/ [Concomitant]
     Active Substance: PANTOPRAZOLE
     Indication: PRODUCT USED FOR UNKNOWN INDICATION
     Dosage: 20 MILLIGRAM, DAILY,DOSAGE FORM: UNSPECIFIED, SINCE YEARS
     Route: 048
  4. ACETYLSALICYLIC ACID [Concomitant]
     Active Substance: ASPIRIN
     Indication: PRODUCT USED FOR UNKNOWN INDICATION
     Dosage: 100 MILLIGRAM, DAILY,DOSAGE FORM: UNSPECIFIED, SINCE YEARS
     Route: 048
  5. PIPAMPERONE [Concomitant]
     Active Substance: PIPAMPERONE
     Dosage: 80 MILLIGRAM, DAILY,DOSAGE FORM: UNSPECIFIED
     Route: 048
     Dates: start: 20180302, end: 201803
  6. MELPERON [Interacting]
     Active Substance: MELPERONE
     Indication: RESTLESSNESS
     Dosage: 50 MILLIGRAM, DAILY,DOSAGE FORM: UNSPECIFIED
     Route: 048
     Dates: start: 20180304, end: 20180305
  7. RAMIPRIL. [Concomitant]
     Active Substance: RAMIPRIL
     Indication: PRODUCT USED FOR UNKNOWN INDICATION
     Dosage: 10 MILLIGRAM, DAILY,DOSAGE FORM: UNSPECIFIED, SINCE YEARS
     Route: 048
  8. SIMVASTATIN. [Concomitant]
     Active Substance: SIMVASTATIN
     Indication: PRODUCT USED FOR UNKNOWN INDICATION
     Dosage: 20 MILLIGRAM, DAILY,DOSAGE FORM: UNSPECIFIED, SINCE YEARS
     Route: 048
  9. TARGIN [Concomitant]
     Active Substance: NALOXONE HYDROCHLORIDE\OXYCODONE HYDROCHLORIDE
     Indication: PRODUCT USED FOR UNKNOWN INDICATION
     Dosage: 20 MILLIGRAM, DAILY,DOSAGE FORM: UNSPECIFIED, SINCE YEARS
     Route: 048
  10. L?THYROXIN                         /00068002/ [Concomitant]
     Active Substance: LEVOTHYROXINE SODIUM
     Indication: PRODUCT USED FOR UNKNOWN INDICATION
     Dosage: 75 MICROGRAM, DAILYDOSAGE FORM: UNSPECIFIED, SINCE YEARS
     Route: 048
  11. RISPERIDONE. [Suspect]
     Active Substance: RISPERIDONE
     Indication: RESTLESSNESS
     Dosage: 0.5 MILLIGRAM, DAILY,DOSAGE FORM: UNSPECIFIED
     Route: 048
     Dates: start: 20180303
  12. RISPERIDONE. [Suspect]
     Active Substance: RISPERIDONE
     Indication: DELUSION
     Dosage: 0.5 MILLIGRAM, DAILY,DOSAGE FORM: UNSPECIFIED
     Route: 048
     Dates: start: 20180303
  13. MELPERON [Interacting]
     Active Substance: MELPERONE
     Indication: DELUSION
     Dosage: 25 MILLIGRAM, DAILY,DOSAGE FORM: UNSPECIFIED
     Route: 048
     Dates: start: 20180303, end: 20180303
  14. MOLSIDOMIN [Concomitant]
     Active Substance: MOLSIDOMINE
     Indication: PRODUCT USED FOR UNKNOWN INDICATION
     Dosage: 8 MILLIGRAM, DAILY,DOSAGE FORM: UNSPECIFIED, SINCE YEARS
     Route: 048
  15. PIPAMPERONE [Concomitant]
     Active Substance: PIPAMPERONE
     Indication: PRODUCT USED FOR UNKNOWN INDICATION
     Dosage: 30 MILLIGRAM, DAILYDOSAGE FORM: UNSPECIFIED
     Route: 048
     Dates: start: 20180306
  16. TORASEMID [Concomitant]
     Active Substance: TORSEMIDE
     Indication: PRODUCT USED FOR UNKNOWN INDICATION
     Dosage: 10 MILLIGRAM, DAILY,DOSAGE FORM: UNSPECIFIED, SINCE YEARS
     Route: 048

REACTIONS (2)
  - Drug interaction [Unknown]
  - Pleurothotonus [Recovered/Resolved]

NARRATIVE: CASE EVENT DATE: 2018
